FAERS Safety Report 6282506-6 (Version None)
Quarter: 2009Q3

REPORT INFORMATION
  Report Type: 
  Country: None (occurrence: None)
  Receive Date: 20090724
  Receipt Date: 20090714
  Transmission Date: 20100115
  Serious: Yes (Disabling, Other)
  Sender: FDA-Public Use
  Company Number: CA-AVENTIS-200917051GDDC

PATIENT
  Age: 68 Year
  Sex: Male

DRUGS (6)
  1. LANTUS [Suspect]
     Route: 058
  2. LIPITOR [Concomitant]
     Route: 048
  3. COZAAR [Concomitant]
     Route: 048
  4. ASPIRIN [Concomitant]
     Route: 048
  5. CARDIOVASCULAR SYSTEM DRUGS [Concomitant]
     Indication: HEART RATE INCREASED
     Route: 048
  6. ALL OTHER THERAPEUTIC PRODUCTS [Concomitant]
     Route: 048
     Dates: start: 20090501

REACTIONS (12)
  - ABDOMINAL PAIN UPPER [None]
  - BLINDNESS [None]
  - CARDIAC DISORDER [None]
  - CARDIOVASCULAR DISORDER [None]
  - DYSPNOEA [None]
  - HEART RATE INCREASED [None]
  - OEDEMA [None]
  - OEDEMA PERIPHERAL [None]
  - PAIN [None]
  - PAIN IN EXTREMITY [None]
  - PROSTATE CANCER [None]
  - TRIGEMINAL NEURALGIA [None]
